FAERS Safety Report 5211984-6 (Version None)
Quarter: 2007Q1

REPORT INFORMATION
  Report Type: 
  Country: None (occurrence: None)
  Receive Date: 20070118
  Receipt Date: 20070108
  Transmission Date: 20070707
  Serious: Yes (Life-Threatening, Hospitalization)
  Sender: FDA-Public Use
  Company Number: FR-GLAXOSMITHKLINE-B0453351A

PATIENT
  Age: 81 Year
  Sex: Male

DRUGS (6)
  1. FLIXOTIDE [Suspect]
     Indication: CHRONIC OBSTRUCTIVE PULMONARY DISEASE
     Dosage: 200MCG PER DAY
     Route: 055
     Dates: end: 20061208
  2. PREVISCAN [Suspect]
     Indication: PULMONARY EMBOLISM
     Dosage: 20MG PER DAY
     Route: 048
     Dates: end: 20061208
  3. PAROXETINE HCL [Concomitant]
     Dosage: 20MG PER DAY
     Route: 048
  4. SEREVENT [Concomitant]
     Indication: CHRONIC OBSTRUCTIVE PULMONARY DISEASE
     Route: 055
  5. VASTEN [Concomitant]
     Indication: CARDIOVASCULAR DISORDER
     Dosage: 20MG PER DAY
     Route: 048
  6. CETIRIZINE HCL [Concomitant]
     Dates: end: 20061208

REACTIONS (9)
  - ABDOMINAL PAIN [None]
  - ACCIDENTAL OVERDOSE [None]
  - ANAEMIA [None]
  - BONE MARROW FAILURE [None]
  - HAEMORRHAGE [None]
  - INTERNATIONAL NORMALISED RATIO INCREASED [None]
  - LUNG INFECTION [None]
  - MUSCLE SPASTICITY [None]
  - PROTHROMBIN LEVEL DECREASED [None]
